FAERS Safety Report 13026970 (Version 1)
Quarter: 2016Q4

REPORT INFORMATION
  Report Type: Spontaneous
  Country: BR (occurrence: BR)
  Receive Date: 20161214
  Receipt Date: 20161214
  Transmission Date: 20170207
  Serious: Yes (Other)
  Sender: FDA-Public Use
  Company Number: BR-PFIZER INC-2016523205

PATIENT
  Age: 58 Year
  Sex: Female
  Weight: 80 kg

DRUGS (14)
  1. ADRIBLASTINA [Suspect]
     Active Substance: DOXORUBICIN HYDROCHLORIDE
     Indication: NON-HODGKIN^S LYMPHOMA
     Dosage: 94 MG, 21/21 DAYS
     Route: 042
     Dates: start: 20160316, end: 20161128
  2. FAULDVINCRI [Suspect]
     Active Substance: VINCRISTINE SULFATE
     Dosage: UNK
  3. GENUXAL [Suspect]
     Active Substance: CYCLOPHOSPHAMIDE
     Indication: NON-HODGKIN^S LYMPHOMA
     Dosage: 1417 MG, 21/21 DAYS
     Route: 042
     Dates: start: 20160316, end: 20161128
  4. MABTHERA [Suspect]
     Active Substance: RITUXIMAB
     Indication: NON-HODGKIN^S LYMPHOMA
     Dosage: 710 MG, 21/21 DAYS
     Route: 042
     Dates: start: 20160316, end: 20161128
  5. ADRIBLASTINA [Suspect]
     Active Substance: DOXORUBICIN HYDROCHLORIDE
     Dosage: UNK
  6. GENUXAL [Suspect]
     Active Substance: CYCLOPHOSPHAMIDE
     Dosage: UNK
  7. VONAU [Concomitant]
     Active Substance: ONDANSETRON HYDROCHLORIDE
  8. PLASIL /00041901/ [Concomitant]
     Active Substance: METOCLOPRAMIDE
  9. PREDNISONE. [Concomitant]
     Active Substance: PREDNISONE
  10. BACTRIM [Concomitant]
     Active Substance: SULFAMETHOXAZOLE\TRIMETHOPRIM
  11. MABTHERA [Suspect]
     Active Substance: RITUXIMAB
     Dosage: UNK
  12. FAULDVINCRI [Suspect]
     Active Substance: VINCRISTINE SULFATE
     Indication: NON-HODGKIN^S LYMPHOMA
     Dosage: 2 MG, 21/21 DAYS
     Route: 042
     Dates: start: 20160316, end: 20161128
  13. OMEPRAZOLE. [Concomitant]
     Active Substance: OMEPRAZOLE
  14. ACICLOVIR [Concomitant]
     Active Substance: ACYCLOVIR

REACTIONS (1)
  - Flushing [Recovered/Resolved]

NARRATIVE: CASE EVENT DATE: 20161107
